FAERS Safety Report 5889149-4 (Version None)
Quarter: 2008Q3

REPORT INFORMATION
  Report Type: 
  Country: None (occurrence: None)
  Receive Date: 20080919
  Receipt Date: 20080909
  Transmission Date: 20090109
  Serious: Yes (Other)
  Sender: FDA-Public Use
  Company Number: AU-BAYER-200826464GPV

PATIENT
  Age: 83 Year
  Sex: Female

DRUGS (2)
  1. AVELOX [Suspect]
     Indication: INTERVERTEBRAL DISCITIS
     Route: 065
  2. MOGADON [Concomitant]
     Indication: DRUG USE FOR UNKNOWN INDICATION
     Route: 065

REACTIONS (1)
  - INTRA-ABDOMINAL HAEMORRHAGE [None]
